FAERS Safety Report 9411491 (Version 1)
Quarter: 2013Q3

REPORT INFORMATION
  Report Type: Spontaneous
  Country: US (occurrence: US)
  Receive Date: 20130722
  Receipt Date: 20130722
  Transmission Date: 20140515
  Serious: Yes (Death)
  Sender: FDA-Public Use
  Company Number: US-SUN PHARMACEUTICAL INDUSTRIES LTD-2013SUN01040

PATIENT
  Age: 56 Year
  Sex: Male

DRUGS (11)
  1. DOCETAXEL INJECTION [Suspect]
     Indication: SQUAMOUS CELL CARCINOMA
     Route: 065
  2. CISPLATIN [Suspect]
     Indication: SQUAMOUS CELL CARCINOMA
     Route: 065
  3. 5-FLUOROURACIL [Suspect]
     Indication: SQUAMOUS CELL CARCINOMA
     Route: 065
  4. HYDRALAZINE [Concomitant]
  5. FUROSEMIDE [Concomitant]
  6. LEVOTHYROXINE [Concomitant]
  7. LISINOPRIL [Concomitant]
  8. HYDROCHLOROTHIAZIDE [Concomitant]
  9. METOPROLOL [Concomitant]
  10. ATORVASTATIN [Concomitant]
  11. AMIODARONE [Concomitant]

REACTIONS (3)
  - Histiocytosis haematophagic [Fatal]
  - Shock [Fatal]
  - Multi-organ failure [Fatal]
